FAERS Safety Report 7542346-4 (Version None)
Quarter: 2011Q2

REPORT INFORMATION
  Report Type: 
  Country: None (occurrence: None)
  Receive Date: 20110524
  Receipt Date: 20110309
  Transmission Date: 20111010
  Serious: No
  Sender: FDA-Public Use
  Company Number: 028952

PATIENT
  Sex: Male
  Weight: 68 kg

DRUGS (4)
  1. CIMZIA [Suspect]
     Indication: CROHN'S DISEASE
     Dosage: INDUCTION  DOSE SUBCUTANEOUS, 400 MG 1X/MONTH SUBCUTANEOUS
     Route: 058
     Dates: start: 20091101
  2. CIMZIA [Suspect]
     Indication: CROHN'S DISEASE
     Dosage: INDUCTION  DOSE SUBCUTANEOUS, 400 MG 1X/MONTH SUBCUTANEOUS
     Route: 058
     Dates: start: 20091001, end: 20090101
  3. COLESTIPOL HYDROCHLORIDE [Concomitant]
  4. CALCIUM CARBONATE [Concomitant]

REACTIONS (1)
  - INJECTION SITE HAEMATOMA [None]
